FAERS Safety Report 8424024-2 (Version None)
Quarter: 2012Q2

REPORT INFORMATION
  Report Type: 
  Country: None (occurrence: None)
  Receive Date: 20120608
  Receipt Date: 20110415
  Transmission Date: 20120825
  Serious: No
  Sender: FDA-Public Use
  Company Number: US-ASTRAZENECA-2011SE22208

PATIENT
  Sex: Female

DRUGS (4)
  1. QVAR 40 [Suspect]
     Indication: BRONCHIECTASIS
  2. CLOZAPINE [Suspect]
     Indication: BRONCHIECTASIS
  3. ADVAIR DISKUS 100/50 [Suspect]
     Indication: BRONCHIECTASIS
  4. PULMICORT [Suspect]
     Indication: BRONCHIECTASIS
     Route: 055

REACTIONS (2)
  - COUGH [None]
  - DRUG INEFFECTIVE [None]
